FAERS Safety Report 18881467 (Version 1)
Quarter: 2021Q1

REPORT INFORMATION
  Report Type: Spontaneous
  Country: ES (occurrence: ES)
  Receive Date: 20210212
  Receipt Date: 20210212
  Transmission Date: 20210420
  Serious: Yes (Hospitalization)
  Sender: FDA-Public Use
  Company Number: ES-LUPIN PHARMACEUTICALS INC.-2021-01637

PATIENT
  Age: 48 Year
  Sex: Male

DRUGS (9)
  1. PREDNISONE. [Suspect]
     Active Substance: PREDNISONE
     Dosage: 45 MILLIGRAM/KILOGRAM
     Route: 065
  2. METHIMAZOLE. [Suspect]
     Active Substance: METHIMAZOLE
     Dosage: 30 MILLIGRAM/KILOGRAM
     Route: 065
  3. PREDNISONE. [Suspect]
     Active Substance: PREDNISONE
     Indication: THYROIDITIS
     Dosage: 30 MILLIGRAM/KILOGRAM
     Route: 065
  4. PREDNISONE. [Suspect]
     Active Substance: PREDNISONE
     Dosage: 60 MILLIGRAM/KILOGRAM
     Route: 065
  5. PREDNISONE. [Suspect]
     Active Substance: PREDNISONE
     Dosage: 90 MILLIGRAM/KILOGRAM
     Route: 065
  6. POTASSIUM CHLORIDE. [Suspect]
     Active Substance: POTASSIUM CHLORIDE
     Indication: THYROIDITIS
     Dosage: UNK
     Route: 065
  7. METHIMAZOLE. [Suspect]
     Active Substance: METHIMAZOLE
     Dosage: 40 MILLIGRAM/KILOGRAM
     Route: 065
  8. PREDNISONE. [Suspect]
     Active Substance: PREDNISONE
     Dosage: 75 MILLIGRAM/KILOGRAM
     Route: 065
  9. METHIMAZOLE. [Suspect]
     Active Substance: METHIMAZOLE
     Indication: THYROIDITIS
     Dosage: 15 MILLIGRAM/KILOGRAM
     Route: 065

REACTIONS (1)
  - Drug ineffective [Unknown]
